FAERS Safety Report 20086655 (Version 1)
Quarter: 2021Q4

REPORT INFORMATION
  Report Type: Spontaneous
  Country: US (occurrence: US)
  Receive Date: 20211118
  Receipt Date: 20211118
  Transmission Date: 20220303
  Serious: Yes (Other)
  Sender: FDA-Public Use
  Company Number: US-MYLANLABS-2021M1085094

PATIENT
  Age: 45 Year
  Sex: Female

DRUGS (1)
  1. ASCORBIC ACID [Suspect]
     Active Substance: ASCORBIC ACID
     Indication: Vitamin supplementation
     Dosage: 1 GRAM, FOR PAST YEAR
     Route: 065

REACTIONS (4)
  - Oxalosis [Unknown]
  - Skin disorder [Unknown]
  - Hypertensive encephalopathy [Unknown]
  - Nephrolithiasis [Unknown]

NARRATIVE: CASE EVENT DATE: 20200101
